FAERS Safety Report 8757981 (Version 1)
Quarter: 2012Q4

REPORT INFORMATION
  Report Type: 
  Country: US (occurrence: US)
  Receive Date: 20120828
  Receipt Date: 20120828
  Transmission Date: 20130627
  Serious: Yes (Other)
  Sender: FDA-Public Use
  Company Number: US-ELI_LILLY_AND_COMPANY-US201208007356

PATIENT
  Weight: 43.54 kg

DRUGS (1)
  1. EFFIENT [Suspect]
     Dosage: UNK, unknown
     Route: 065

REACTIONS (1)
  - Stent placement [Unknown]
